FAERS Safety Report 5337171-9 (Version None)
Quarter: 2007Q2

REPORT INFORMATION
  Report Type: 
  Country: None (occurrence: None)
  Receive Date: 20070529
  Receipt Date: 20070519
  Transmission Date: 20071010
  Serious: Yes (Other)
  Sender: FDA-Public Use
  Company Number: US-PFIZER INC-2007040614

PATIENT
  Sex: Male
  Weight: 70.454 kg

DRUGS (1)
  1. LIPITOR [Suspect]
     Indication: HIGH DENSITY LIPOPROTEIN DECREASED
     Dosage: DAILY DOSE:20MG
     Route: 048

REACTIONS (1)
  - POLYNEUROPATHY [None]
